FAERS Safety Report 22141333 (Version 5)
Quarter: 2023Q2

REPORT INFORMATION
  Report Type: Spontaneous
  Country: CA (occurrence: CA)
  Receive Date: 20230327
  Receipt Date: 20230620
  Transmission Date: 20230721
  Serious: No
  Sender: FDA-Public Use
  Company Number: CA-PFIZER INC-202300018429

PATIENT
  Age: 14 Year
  Sex: Male

DRUGS (1)
  1. GENOTROPIN [Suspect]
     Active Substance: SOMATROPIN
     Indication: Short stature
     Dosage: 1.4 MG FOR 3 DAYS/WEEK AND 1.6 MG FOR 3 DAYS/WEEK
     Route: 058
     Dates: start: 20230222

REACTIONS (2)
  - Injection site discomfort [Unknown]
  - Device defective [Unknown]
